FAERS Safety Report 5939906-0 (Version None)
Quarter: 2008Q4

REPORT INFORMATION
  Report Type: 
  Country: None (occurrence: None)
  Receive Date: 20081030
  Receipt Date: 20081030
  Transmission Date: 20090506
  Serious: Yes (Hospitalization)
  Sender: FDA-Public Use
  Company Number: None

PATIENT
  Sex: Female
  Weight: 130.91 kg

DRUGS (2)
  1. CARBOPLATIN [Suspect]
     Dosage: 640 MG
  2. TAXOL [Suspect]
     Dosage: 350 MG

REACTIONS (2)
  - CATHETER SITE INFECTION [None]
  - ERYTHEMA [None]
